FAERS Safety Report 12093869 (Version 1)
Quarter: 2016Q1

REPORT INFORMATION
  Report Type: Other
  Country: IT (occurrence: IT)
  Receive Date: 20160219
  Receipt Date: 20160219
  Transmission Date: 20160526
  Serious: Yes (Death)
  Sender: FDA-Public Use
  Company Number: IT-B. BRAUN MEDICAL INC.-1048116

PATIENT
  Age: 63 Year
  Sex: Female

DRUGS (2)
  1. VANCOMYCIN [Suspect]
     Active Substance: VANCOMYCIN
     Route: 048
  2. METRONIDAZOLE. [Suspect]
     Active Substance: METRONIDAZOLE
     Route: 042

REACTIONS (3)
  - Drug effect decreased [None]
  - Condition aggravated [None]
  - Septic shock [None]
